FAERS Safety Report 16449406 (Version 1)
Quarter: 2019Q2

REPORT INFORMATION
  Report Type: Other
  Country: JP (occurrence: JP)
  Receive Date: 20190619
  Receipt Date: 20190619
  Transmission Date: 20190711
  Serious: Yes (Hospitalization, Other)
  Sender: FDA-Public Use
  Company Number: JP-VISTAPHARM, INC.-VER201906-000392

PATIENT
  Age: 74 Year
  Sex: Male

DRUGS (2)
  1. CYCLOSPORINE A [Suspect]
     Active Substance: CYCLOSPORINE
     Indication: OEDEMA
     Dosage: UNKNOWN
  2. PREDNISOLONE. [Suspect]
     Active Substance: PREDNISOLONE
     Indication: OEDEMA
     Dosage: UNKNOWN

REACTIONS (2)
  - Substance-induced psychotic disorder [Unknown]
  - Lymphoproliferative disorder [Unknown]
